FAERS Safety Report 5502239-0 (Version None)
Quarter: 2007Q4

REPORT INFORMATION
  Report Type: 
  Country: None (occurrence: None)
  Receive Date: 20071026
  Receipt Date: 20071015
  Transmission Date: 20080405
  Serious: Yes (Hospitalization)
  Sender: FDA-Public Use
  Company Number: 17669

PATIENT
  Age: 46 Year
  Sex: Female

DRUGS (4)
  1. PACLITAXEL [Suspect]
     Indication: OVARIAN CANCER
     Dosage: 270 MG ONCE IV
     Route: 042
     Dates: start: 20070606, end: 20070606
  2. CETIRIZIN [Concomitant]
  3. ORADEXON TAB [Concomitant]
  4. RANIMEX [Concomitant]

REACTIONS (5)
  - BACK PAIN [None]
  - RASH ERYTHEMATOUS [None]
  - UNEVALUABLE EVENT [None]
  - VISUAL DISTURBANCE [None]
  - VOMITING [None]
